FAERS Safety Report 8035767-7 (Version None)
Quarter: 2011Q4

REPORT INFORMATION
  Report Type: 
  Country: None (occurrence: None)
  Receive Date: 20111228
  Receipt Date: 20111212
  Transmission Date: 20120403
  Serious: Yes (Hospitalization)
  Sender: FDA-Public Use
  Company Number: ACO_28512_2011

PATIENT
  Age: 62 Year
  Sex: Male

DRUGS (1)
  1. FAMPRIDINE-SR (FAMPRIDINE) TABLET [Suspect]
     Indication: MULTIPLE SCLEROSIS
     Dosage: 10 MG, BID, ORAL
     Route: 048

REACTIONS (4)
  - RIB FRACTURE [None]
  - MULTIPLE SCLEROSIS RELAPSE [None]
  - DRUG DOSE OMISSION [None]
  - FALL [None]
